FAERS Safety Report 9098186 (Version 1)
Quarter: 2013Q1

REPORT INFORMATION
  Report Type: Spontaneous
  Country: JP (occurrence: JP)
  Receive Date: 20130213
  Receipt Date: 20130213
  Transmission Date: 20140127
  Serious: Yes (Other)
  Sender: FDA-Public Use
  Company Number: JP-SANOFI-AVENTIS-2013SA005868

PATIENT
  Sex: Female

DRUGS (1)
  1. ENOXAPARIN SODIUM [Suspect]
     Indication: PROPHYLAXIS
     Route: 065

REACTIONS (4)
  - Extradural haematoma [Recovered/Resolved]
  - Muscular weakness [Recovering/Resolving]
  - Dysuria [Recovering/Resolving]
  - Hypoaesthesia [Unknown]
